FAERS Safety Report 5221470-5 (Version None)
Quarter: 2007Q1

REPORT INFORMATION
  Report Type: 
  Country: None (occurrence: None)
  Receive Date: 20070126
  Receipt Date: 20070118
  Transmission Date: 20070707
  Serious: Yes (Hospitalization)
  Sender: FDA-Public Use
  Company Number: JP-MERCK-0701USA03797

PATIENT
  Age: 96 Year
  Sex: Female

DRUGS (5)
  1. PEPCID [Suspect]
     Route: 041
     Dates: start: 20061220, end: 20061221
  2. PEPCID RPD [Suspect]
     Route: 048
     Dates: start: 20061222, end: 20070103
  3. PRIMPERAN [Concomitant]
     Route: 042
     Dates: start: 20061220, end: 20061221
  4. CLARITHROMYCIN [Concomitant]
     Route: 048
     Dates: start: 20061222, end: 20061223
  5. PENTCILLIN [Concomitant]
     Route: 042
     Dates: start: 20061225, end: 20061230

REACTIONS (1)
  - ERYTHEMA MULTIFORME [None]
